FAERS Safety Report 6756706-2 (Version None)
Quarter: 2010Q2

REPORT INFORMATION
  Report Type: 
  Country: None (occurrence: None)
  Receive Date: 20100604
  Receipt Date: 20100521
  Transmission Date: 20101027
  Serious: Yes (Hospitalization, Other)
  Sender: FDA-Public Use
  Company Number: US-ELI_LILLY_AND_COMPANY-US201005006846

PATIENT
  Sex: Female

DRUGS (4)
  1. FORTEO [Suspect]
     Indication: OSTEOPOROSIS
     Dosage: 20 UG, DAILY (1/D)
     Dates: start: 20090601
  2. CALCIUM CARBONATE [Concomitant]
  3. VITAMIN D [Concomitant]
  4. ANTIBIOTICS [Concomitant]

REACTIONS (4)
  - APHAGIA [None]
  - COUGH [None]
  - HIATUS HERNIA [None]
  - PNEUMONIA [None]
